FAERS Safety Report 17530959 (Version 1)
Quarter: 2020Q1

REPORT INFORMATION
  Report Type: Spontaneous
  Country: US (occurrence: US)
  Receive Date: 20200312
  Receipt Date: 20200312
  Transmission Date: 20200409
  Serious: Yes (Hospitalization, Other)
  Sender: FDA-Public Use
  Company Number: US-AUROBINDO-AUR-APL-2020-012398

PATIENT
  Age: 25 Year
  Sex: Male

DRUGS (3)
  1. IBUPROFEN. [Suspect]
     Active Substance: IBUPROFEN
     Indication: MYALGIA
     Dosage: 1600-2400 MG, ONCE A DAY (FOR ABOUT 12 DAYS PER MONTH)
     Route: 048
  2. CLOMIPHENE [Suspect]
     Active Substance: CLOMIPHENE
     Indication: PRODUCT USED FOR UNKNOWN INDICATION
     Dosage: UNK
     Route: 065
  3. CREATINE [Suspect]
     Active Substance: CREATINE
     Indication: PRODUCT USED FOR UNKNOWN INDICATION
     Dosage: UNK
     Route: 065

REACTIONS (16)
  - Syncope [Recovered/Resolved]
  - Fatigue [Recovered/Resolved]
  - Splenomegaly [Recovered/Resolved]
  - Ocular icterus [Recovered/Resolved]
  - Hepatic enzyme increased [Recovered/Resolved]
  - Hepatic failure [Recovered/Resolved]
  - Hepatomegaly [Recovered/Resolved]
  - Seizure [Recovered/Resolved]
  - Jaundice [Recovered/Resolved]
  - Epstein-Barr virus infection [Recovered/Resolved]
  - Cold type haemolytic anaemia [Recovered/Resolved]
  - Hepatitis acute [Recovered/Resolved]
  - Dry mouth [Recovered/Resolved]
  - Hepatitis infectious mononucleosis [Recovered/Resolved]
  - Cholestasis [Recovered/Resolved]
  - Chromaturia [Recovered/Resolved]
